FAERS Safety Report 8343729-5 (Version None)
Quarter: 2012Q2

REPORT INFORMATION
  Report Type: 
  Country: None (occurrence: None)
  Receive Date: 20120508
  Receipt Date: 20120508
  Transmission Date: 20120825
  Serious: No
  Sender: FDA-Public Use
  Company Number: None

PATIENT
  Age: 13 Year
  Sex: Female
  Weight: 60.781 kg

DRUGS (2)
  1. KEPPRA [Suspect]
     Indication: ANXIETY
     Dosage: 500 MG
     Route: 048
     Dates: start: 20120426, end: 20120426
  2. KEPPRA [Suspect]
     Indication: ROAD TRAFFIC ACCIDENT
     Dosage: 500 MG
     Route: 048
     Dates: start: 20120426, end: 20120426

REACTIONS (2)
  - OFF LABEL USE [None]
  - CRYING [None]
